FAERS Safety Report 10163574 (Version 2)
Quarter: 2014Q2

REPORT INFORMATION
  Report Type: Report from Study
  Country: AR (occurrence: AR)
  Receive Date: 20140509
  Receipt Date: 20140527
  Transmission Date: 20141212
  Serious: Yes (Life-Threatening, Other)
  Sender: FDA-Public Use
  Company Number: PHHY2014AR056658

PATIENT
  Sex: Female

DRUGS (1)
  1. LESCOL XL [Suspect]
     Dosage: UNK UKN, UNK

REACTIONS (5)
  - Feeling abnormal [Unknown]
  - Pulmonary embolism [Unknown]
  - Thrombosis [Unknown]
  - Blood pressure increased [Unknown]
  - Blood cholesterol increased [Unknown]
